FAERS Safety Report 8831913 (Version 1)
Quarter: 2012Q4

REPORT INFORMATION
  Report Type: 
  Country: US (occurrence: US)
  Receive Date: 20121008
  Receipt Date: 20121008
  Transmission Date: 20130627
  Serious: Yes (Hospitalization)
  Sender: FDA-Public Use
  Company Number: US-ASTRAZENECA-2012SE75310

PATIENT
  Age: 80 Year
  Sex: Female

DRUGS (2)
  1. PULMICORT RESPULES [Suspect]
     Route: 055
  2. OXYGEN [Concomitant]

REACTIONS (2)
  - Musculoskeletal discomfort [Unknown]
  - Diabetes mellitus [Unknown]
